FAERS Safety Report 5939798-X (Version None)
Quarter: 2008Q4

REPORT INFORMATION
  Report Type: 
  Country: None (occurrence: None)
  Receive Date: 20081031
  Receipt Date: 20081031
  Transmission Date: 20090506
  Serious: No
  Sender: FDA-Public Use
  Company Number: None

PATIENT
  Age: 22 Year
  Sex: Female

DRUGS (4)
  1. CEFTRIAXONE [Suspect]
     Dates: start: 20070809, end: 20070810
  2. METRONIDAZOLE [Suspect]
     Dates: start: 20070809, end: 20070815
  3. CIPROFLOXACIN [Suspect]
     Dates: start: 20070811, end: 20070812
  4. PERCOCET [Concomitant]

REACTIONS (1)
  - LIVER INJURY [None]
